FAERS Safety Report 7329413-5 (Version None)
Quarter: 2011Q1

REPORT INFORMATION
  Report Type: 
  Country: None (occurrence: None)
  Receive Date: 20110223
  Receipt Date: 20110210
  Transmission Date: 20110831
  Serious: Yes (Hospitalization)
  Sender: FDA-Public Use
  Company Number: 2011GW000095

PATIENT
  Age: 44 Year
  Sex: Male

DRUGS (13)
  1. ASPIRIN [Concomitant]
  2. MYCOPHENOLATE MOFETIL [Concomitant]
  3. AZATHIOPRINE [Concomitant]
  4. IMIQUIMOD [Suspect]
     Indication: SKIN PAPILLOMA
     Dosage: 5 PCT; QPD; TOP
     Route: 061
  5. RANITIDINE [Concomitant]
  6. FLECAINIDE ACETATE [Concomitant]
  7. PREDNISONE TAB [Concomitant]
  8. RAPAMYCIN [Concomitant]
  9. AMIODARONE [Concomitant]
  10. ATORVASTATIN [Concomitant]
  11. CYCLOSPORINE [Concomitant]
  12. PROGRAF [Concomitant]
  13. AMLODIPINE [Concomitant]

REACTIONS (16)
  - RENAL TUBULAR NECROSIS [None]
  - ANURIA [None]
  - WHITE BLOOD CELL COUNT INCREASED [None]
  - PYREXIA [None]
  - DIZZINESS [None]
  - HAEMOGLOBIN DECREASED [None]
  - OROPHARYNGEAL PAIN [None]
  - HAEMATOCRIT DECREASED [None]
  - ASTHENIA [None]
  - ULTRASOUND SCAN ABNORMAL [None]
  - BACK PAIN [None]
  - MALAISE [None]
  - HEPATITIS C ANTIBODY POSITIVE [None]
  - BLOOD FIBRINOGEN INCREASED [None]
  - NO THERAPEUTIC RESPONSE [None]
  - HAEMODIALYSIS [None]
